FAERS Safety Report 12381117 (Version 2)
Quarter: 2016Q2

REPORT INFORMATION
  Report Type: Spontaneous
  Country: US (occurrence: US)
  Receive Date: 20160518
  Receipt Date: 20160603
  Transmission Date: 20160815
  Serious: Yes (Other)
  Sender: FDA-Public Use
  Company Number: US-009507513-1605USA006880

PATIENT
  Age: 71 Year
  Sex: Male

DRUGS (2)
  1. CUBICIN [Suspect]
     Active Substance: DAPTOMYCIN
     Indication: ARTHRITIS BACTERIAL
  2. CUBICIN [Suspect]
     Active Substance: DAPTOMYCIN
     Indication: BACTERAEMIA

REACTIONS (4)
  - Eosinophilic pneumonia acute [Recovered/Resolved]
  - Toxicity to various agents [Recovered/Resolved]
  - Tubulointerstitial nephritis [Recovered/Resolved]
  - Myopathy toxic [Recovered/Resolved]
